FAERS Safety Report 5292649-1 (Version None)
Quarter: 2007Q2

REPORT INFORMATION
  Report Type: 
  Country: None (occurrence: None)
  Receive Date: 20070404
  Receipt Date: 20070321
  Transmission Date: 20071010
  Serious: Yes (Hospitalization, Other)
  Sender: FDA-Public Use
  Company Number: PAR_1456_2007

PATIENT
  Age: 65 Year
  Sex: Male

DRUGS (1)
  1. CABERGOLINE [Suspect]
     Indication: PROLACTINOMA
     Dosage: 0.5 MG QDAY PO
     Route: 048

REACTIONS (5)
  - BONE DISORDER [None]
  - INTRACRANIAL HYPOTENSION [None]
  - RHINORRHOEA [None]
  - SINUS DISORDER [None]
  - TRANSFERRIN [None]
